FAERS Safety Report 4904338-0 (Version None)
Quarter: 2006Q1

REPORT INFORMATION
  Report Type: 
  Country: None (occurrence: None)
  Receive Date: 20060208
  Receipt Date: 20050824
  Transmission Date: 20060701
  Serious: No
  Sender: FDA-Public Use
  Company Number: US-GLAXOSMITHKLINE-A0571670A

PATIENT
  Sex: Male

DRUGS (20)
  1. PAXIL [Suspect]
     Indication: DEPRESSION
     Dosage: 10MG PER DAY
     Route: 048
     Dates: start: 19930101
  2. ZONEGRAN [Concomitant]
  3. DEPAKOTE [Concomitant]
  4. DEXAMETHASONE [Concomitant]
  5. ISOSORBIDE [Concomitant]
  6. ATENOLOL [Concomitant]
  7. POTASSIUM CHLORIDE [Concomitant]
  8. ASPIRIN [Concomitant]
  9. PENTASA [Concomitant]
  10. CORTEF [Concomitant]
  11. PREVACID [Concomitant]
  12. MAGNESIUM OXIDE [Concomitant]
  13. ZESTRIL [Concomitant]
  14. SYNTHROID [Concomitant]
  15. FUROSEMIDE [Concomitant]
  16. PROPOXYPHENE HCL AND ACETAMINOPHEN [Concomitant]
  17. PERCOCET [Concomitant]
  18. FLUOROMETHOLONE [Concomitant]
  19. FLONASE [Concomitant]
  20. MULTI-VITAMIN [Concomitant]

REACTIONS (3)
  - DRUG ADMINISTRATION ERROR [None]
  - DRUG WITHDRAWAL SYNDROME [None]
  - NERVOUSNESS [None]
